FAERS Safety Report 8926852 (Version 1)
Quarter: 2012Q4

REPORT INFORMATION
  Report Type: Report from Study
  Country: BE (occurrence: BE)
  Receive Date: 20121127
  Receipt Date: 20121127
  Transmission Date: 20130627
  Serious: Yes (Hospitalization)
  Sender: FDA-Public Use
  Company Number: BE-ABBOTT-12P-013-1012274-00

PATIENT
  Sex: Female

DRUGS (8)
  1. HUMIRA [Suspect]
     Indication: RHEUMATOID ARTHRITIS
     Dates: start: 20110511
  2. LEDERTREXATE [Concomitant]
     Indication: ARTHRITIS
  3. CELECOXIB [Concomitant]
     Indication: ARTHRITIS
     Dosage: sporadic
  4. FOLIC ACID [Concomitant]
     Indication: PRODUCT USED FOR UNKNOWN INDICATION
     Dosage: 5 mg daily
  5. SALMETEROL (XINAFOAAT) + FLUTICASON, PROPINAAT (SERETIDE 50/500) [Concomitant]
     Indication: PRODUCT USED FOR UNKNOWN INDICATION
  6. DUOVENT [Concomitant]
     Indication: PRODUCT USED FOR UNKNOWN INDICATION
     Dosage: 1 ? 2/day
  7. LORATIDINE (NON-ABBOTT) [Concomitant]
     Indication: PRODUCT USED FOR UNKNOWN INDICATION
  8. MONTELUKAST (NON-ABBOTT) [Concomitant]
     Indication: PRODUCT USED FOR UNKNOWN INDICATION

REACTIONS (1)
  - Status asthmaticus [Recovered/Resolved]
